FAERS Safety Report 7075601-5 (Version None)
Quarter: 2010Q4

REPORT INFORMATION
  Report Type: 
  Country: None (occurrence: None)
  Receive Date: 20101030
  Receipt Date: 20101004
  Transmission Date: 20110411
  Serious: Yes (Other)
  Sender: FDA-Public Use
  Company Number: US-WYE-H18140410

PATIENT
  Sex: Female

DRUGS (2)
  1. TORISEL [Suspect]
     Indication: RENAL CELL CARCINOMA
     Dosage: NOT PROVIDED
     Route: 042
     Dates: start: 20090526, end: 20090601
  2. TORISEL [Suspect]
     Dosage: NOT PROVIDED
     Route: 042
     Dates: start: 20090601, end: 20100901

REACTIONS (1)
  - THROMBOCYTOPENIA [None]
